FAERS Safety Report 5106301-6 (Version None)
Quarter: 2006Q3

REPORT INFORMATION
  Report Type: 
  Country: None (occurrence: None)
  Receive Date: 20060918
  Receipt Date: 20060911
  Transmission Date: 20061208
  Serious: Yes (Other)
  Sender: FDA-Public Use
  Company Number: US-JNJFOC-20060902383

PATIENT
  Sex: Male

DRUGS (2)
  1. FLEXERIL [Suspect]
     Indication: MUSCLE SPASMS
     Route: 048
  2. AMBIEN CR [Interacting]
     Indication: INSOMNIA
     Route: 048

REACTIONS (4)
  - ABNORMAL BEHAVIOUR [None]
  - AMNESIA [None]
  - DRUG INTERACTION [None]
  - SLEEP WALKING [None]
